FAERS Safety Report 4506667-1 (Version None)
Quarter: 2004Q4

REPORT INFORMATION
  Report Type: 
  Country: None (occurrence: None)
  Receive Date: 20041117
  Receipt Date: 20041108
  Transmission Date: 20050328
  Serious: Yes (Hospitalization, Other)
  Sender: FDA-Public Use
  Company Number: KII-2004-0013873

PATIENT
  Age: 77 Year
  Sex: Female

DRUGS (3)
  1. MORPHINE SULFATE [Suspect]
     Indication: PAIN
     Dosage: 90 MG, BID, ORAL
     Route: 048
  2. AMITRIPTYLINE (AMITRIPTYLINE) [Suspect]
     Dosage: ORAL
     Route: 048
  3. ATARAX [Concomitant]

REACTIONS (15)
  - AGITATION [None]
  - BLOOD POTASSIUM DECREASED [None]
  - BLOOD PRESSURE SYSTOLIC INCREASED [None]
  - COMA [None]
  - DRUG INTOLERANCE [None]
  - ELECTROCARDIOGRAM ST SEGMENT DEPRESSION [None]
  - HYPERCAPNIA [None]
  - HYPOVENTILATION [None]
  - MULTIPLE DRUG OVERDOSE ACCIDENTAL [None]
  - OXYGEN SATURATION DECREASED [None]
  - RESPIRATORY ACIDOSIS [None]
  - RESPIRATORY RATE DECREASED [None]
  - RESPIRATORY RATE INCREASED [None]
  - SOMNOLENCE [None]
  - TACHYCARDIA [None]
